FAERS Safety Report 10339244 (Version 1)
Quarter: 2014Q3

REPORT INFORMATION
  Report Type: Spontaneous
  Country: GB (occurrence: None)
  Receive Date: 20140721
  Receipt Date: 20140721
  Transmission Date: 20150326
  Serious: Yes (Hospitalization, Other)
  Sender: FDA-Public Use
  Company Number: AUR-APL-2014-07722

PATIENT
  Age: 58 Year
  Sex: Female

DRUGS (5)
  1. BISACODYL (BISACODYL) [Concomitant]
     Active Substance: BISACODYL
  2. PARACETAMOL (PARACETAMOL) [Concomitant]
     Active Substance: ACETAMINOPHEN
  3. CODEINE (CODEINE) [Concomitant]
     Active Substance: CODEINE
  4. NAPROXEN 500MG (NAPROXEN) UNKNOWN, 500MG [Suspect]
     Active Substance: NAPROXEN
     Indication: OSTEOARTHRITIS
     Dosage: 500 MG, TWO TIMES A DAY, ORAL
     Route: 048
     Dates: start: 20110701, end: 20140626
  5. OMEPRAZOLE SODIUM (OMEPRAZOLE SODIUM) [Concomitant]

REACTIONS (4)
  - Anaemia [None]
  - Gastrointestinal haemorrhage [None]
  - Dyspnoea [None]
  - Oral pain [None]

NARRATIVE: CASE EVENT DATE: 20140626
